FAERS Safety Report 4423686-4 (Version None)
Quarter: 2004Q3

REPORT INFORMATION
  Report Type: 
  Country: None (occurrence: None)
  Receive Date: 20040805
  Receipt Date: 20040721
  Transmission Date: 20050211
  Serious: No
  Sender: FDA-Public Use
  Company Number: 2004AP03863

PATIENT
  Sex: Female

DRUGS (2)
  1. ACCOLATE [Suspect]
     Indication: ASTHMA
     Dosage: 40 MG DAILY PO
     Route: 048
     Dates: start: 20030319, end: 20030513
  2. FLUTICASONE PROPIONATE [Concomitant]

REACTIONS (2)
  - ABORTION SPONTANEOUS [None]
  - DRUG EXPOSURE DURING PREGNANCY [None]
